FAERS Safety Report 8987640 (Version 1)
Quarter: 2012Q4

REPORT INFORMATION
  Report Type: 
  Country: US (occurrence: US)
  Receive Date: 20121227
  Receipt Date: 20121227
  Transmission Date: 20130627
  Serious: No
  Sender: FDA-Public Use
  Company Number: US-TEVA-377677USA

PATIENT
  Age: 18 Year
  Sex: Female
  Weight: 48.12 kg

DRUGS (4)
  1. PLAN B ONE-STEP [Suspect]
     Indication: POST COITAL CONTRACEPTION
     Dosage: 1.5 Milligram Daily;
     Route: 048
     Dates: start: 20121219, end: 20121219
  2. CLARITIN [Concomitant]
     Indication: SEASONAL ALLERGY
  3. LORYNA [Concomitant]
     Indication: DYSMENORRHOEA
  4. LORYNA [Concomitant]
     Indication: CONTRACEPTION

REACTIONS (1)
  - Pelvic pain [Not Recovered/Not Resolved]
